FAERS Safety Report 5674180-4 (Version None)
Quarter: 2008Q1

REPORT INFORMATION
  Report Type: 
  Country: None (occurrence: None)
  Receive Date: 20080320
  Receipt Date: 20080312
  Transmission Date: 20080703
  Serious: Yes (Other)
  Sender: FDA-Public Use
  Company Number: PHHY2008AU03000

PATIENT

DRUGS (1)
  1. TASIGNA [Suspect]

REACTIONS (1)
  - TUBERCULOSIS [None]
